FAERS Safety Report 22139995 (Version 1)
Quarter: 2023Q1

REPORT INFORMATION
  Report Type: Spontaneous
  Country: US (occurrence: US)
  Receive Date: 20230327
  Receipt Date: 20230327
  Transmission Date: 20230417
  Serious: Yes (Other)
  Sender: FDA-Public Use
  Company Number: US-002147023-NVSC2023US065836

PATIENT
  Sex: Female

DRUGS (1)
  1. DUREZOL [Suspect]
     Active Substance: DIFLUPREDNATE
     Indication: Product used for unknown indication
     Dosage: 1 DRP, QD EACH EYE
     Route: 047

REACTIONS (4)
  - Uveitis [Unknown]
  - Macular oedema [Unknown]
  - Glaucoma [Unknown]
  - Product availability issue [Unknown]
